FAERS Safety Report 10077000 (Version 2)
Quarter: 2014Q2

REPORT INFORMATION
  Report Type: Spontaneous
  Country: US (occurrence: US)
  Receive Date: 20140414
  Receipt Date: 20140506
  Transmission Date: 20141212
  Serious: Yes (Other)
  Sender: FDA-Public Use
  Company Number: US-PFIZER INC-2014103809

PATIENT
  Age: 71 Year
  Sex: Female

DRUGS (1)
  1. ADVIL [Suspect]
     Indication: PERIPHERAL SWELLING
     Dosage: UNK, 2X/DAY
     Dates: start: 2014, end: 20140409

REACTIONS (1)
  - Intra-abdominal haemorrhage [Recovered/Resolved]
